FAERS Safety Report 4473740-6 (Version None)
Quarter: 2004Q3

REPORT INFORMATION
  Report Type: 
  Country: None (occurrence: None)
  Receive Date: 20040917
  Receipt Date: 20040601
  Transmission Date: 20050211
  Serious: Yes (Other)
  Sender: FDA-Public Use
  Company Number: US-JNJFOC-20040601150

PATIENT
  Age: 25 Year
  Sex: Female
  Weight: 56.6996 kg

DRUGS (4)
  1. ORTHO EVRA [Suspect]
     Indication: CONTRACEPTION
     Dosage: 1 DOSE(S), 3 IN 4 WEEK, TRANSDERMAL
     Route: 062
     Dates: start: 20031201
  2. VICODIN [Concomitant]
  3. NAPROXEN [Concomitant]
  4. TYLENOL [Concomitant]

REACTIONS (4)
  - ECCHYMOSIS [None]
  - INCISION SITE COMPLICATION [None]
  - MENOMETRORRHAGIA [None]
  - SYNCOPE [None]
